FAERS Safety Report 5141840-3 (Version None)
Quarter: 2006Q4

REPORT INFORMATION
  Report Type: 
  Country: None (occurrence: None)
  Receive Date: 20061027
  Receipt Date: 20061010
  Transmission Date: 20070319
  Serious: Yes (Hospitalization)
  Sender: FDA-Public Use
  Company Number: 2006SP002721

PATIENT
  Age: 52 Year
  Sex: Male
  Weight: 52 kg

DRUGS (11)
  1. PEG-INTRON [Suspect]
     Indication: HEPATITIS C
     Dosage: 100 MCG;QW;SC
     Route: 058
     Dates: start: 20060512, end: 20060907
  2. REBETOL [Suspect]
     Indication: HEPATITIS C
     Dosage: SEE IMAGE
     Route: 048
     Dates: start: 20060512, end: 20060614
  3. REBETOL [Suspect]
     Indication: HEPATITIS C
     Dosage: SEE IMAGE
     Route: 048
     Dates: start: 20060615, end: 20060907
  4. DOGMATYL (SULPIRIDE) [Suspect]
     Indication: BIPOLAR I DISORDER
     Dates: end: 20060921
  5. DOGMATYL (SULPIRIDE) [Suspect]
     Indication: INSOMNIA
     Dates: end: 20060921
  6. PZC (PERPHENAZINE MALEATE) [Suspect]
     Indication: BIPOLAR I DISORDER
     Dates: end: 20060921
  7. PZC (PERPHENAZINE MALEATE) [Suspect]
     Indication: INSOMNIA
     Dates: end: 20060921
  8. CONTMIN (CHLORPROMAZINE) [Suspect]
     Indication: BIPOLAR I DISORDER
     Dates: end: 20060921
  9. CONTMIN (CHLORPROMAZINE) [Suspect]
     Indication: INSOMNIA
     Dates: end: 20060921
  10. PAXIL [Concomitant]
  11. ROHYPNOL [Concomitant]

REACTIONS (1)
  - PARKINSONISM [None]
